FAERS Safety Report 9369844 (Version 1)
Quarter: 2013Q2

REPORT INFORMATION
  Report Type: Report from Study
  Country: US (occurrence: US)
  Receive Date: 20130626
  Receipt Date: 20130626
  Transmission Date: 20140414
  Serious: Yes (Other)
  Sender: FDA-Public Use
  Company Number: US-JNJFOC-20130611951

PATIENT
  Sex: Female
  Weight: 47.17 kg

DRUGS (5)
  1. REMICADE [Suspect]
     Indication: CROHN^S DISEASE
     Route: 042
     Dates: start: 2012
  2. REMICADE [Suspect]
     Indication: CROHN^S DISEASE
     Route: 042
     Dates: start: 2006, end: 2012
  3. LOESTRIN [Concomitant]
     Indication: CONTRACEPTION
     Route: 048
     Dates: start: 2012
  4. METOPROLOL XL [Concomitant]
     Indication: HEART RATE INCREASED
     Route: 048
     Dates: start: 2012
  5. ALIGN PROBIOTIC [Concomitant]
     Indication: DIARRHOEA
     Route: 048
     Dates: start: 201212

REACTIONS (4)
  - Therapeutic response decreased [Recovering/Resolving]
  - Dyspnoea [Recovered/Resolved]
  - Chest discomfort [Recovered/Resolved]
  - Headache [Not Recovered/Not Resolved]
